FAERS Safety Report 12115008 (Version 1)
Quarter: 2016Q1

REPORT INFORMATION
  Report Type: Spontaneous
  Country: US (occurrence: None)
  Receive Date: 20160224
  Receipt Date: 20160224
  Transmission Date: 20160526
  Serious: Yes (Disabling, Other)
  Sender: FDA-Public Use
  Company Number: None

PATIENT
  Age: 66 Year
  Sex: Female
  Weight: 96.16 kg

DRUGS (8)
  1. BONE-UP [Concomitant]
  2. LOSARTAN. [Concomitant]
     Active Substance: LOSARTAN
  3. EYEBRIGHT HERB [Concomitant]
  4. SYNTHROID [Concomitant]
     Active Substance: LEVOTHYROXINE SODIUM
  5. PROBIOTICS [Concomitant]
     Active Substance: PROBIOTICS NOS
  6. AMLODIPINE BESYLATE 10MG LUPIN [Suspect]
     Active Substance: AMLODIPINE BESYLATE
     Indication: DRUG THERAPY
     Route: 048
     Dates: start: 20160217, end: 20160218
  7. FLUNISOLIDE NASAL SPRAY [Concomitant]
  8. FUROSEMIDE. [Concomitant]
     Active Substance: FUROSEMIDE

REACTIONS (9)
  - Dizziness [None]
  - Memory impairment [None]
  - Product formulation issue [None]
  - Cognitive disorder [None]
  - Axillary mass [None]
  - Discomfort [None]
  - Nausea [None]
  - Headache [None]
  - Aphasia [None]

NARRATIVE: CASE EVENT DATE: 20160217
